FAERS Safety Report 15471439 (Version 1)
Quarter: 2018Q4

REPORT INFORMATION
  Report Type: Spontaneous
  Country: NL (occurrence: NL)
  Receive Date: 20181007
  Receipt Date: 20181007
  Transmission Date: 20190205
  Serious: Yes (Other)
  Sender: FDA-Public Use
  Company Number: NL-TEVA-2018-NL-961550

PATIENT
  Age: 34 Year
  Sex: Female
  Weight: 118 kg

DRUGS (8)
  1. MONTELUKAST [Concomitant]
     Active Substance: MONTELUKAST SODIUM
     Dosage: 10 MILLIGRAM DAILY;
  2. LEVOCETIRICINE [Concomitant]
     Dosage: 1-2DD1
     Route: 065
  3. QUETIAPINE 50 MG RETARD [Concomitant]
     Dosage: 150 MILLIGRAM DAILY;
     Route: 065
  4. ESCITALOPRAM 15MG [Concomitant]
     Dosage: 30 MILLIGRAM DAILY; 1DD2
     Route: 065
  5. FLIXOTIDE DISKUS 500 [Concomitant]
  6. QUETIAPINE 100MG [Concomitant]
     Active Substance: QUETIAPINE
     Dosage: 100 MILLIGRAM DAILY;
     Route: 065
  7. SUMATRIPTAN TABLET, 50 MG (MILLIGRAM) [Suspect]
     Active Substance: SUMATRIPTAN
     Indication: MIGRAINE
     Dosage: ZO NODIG 1X1TABL
     Route: 065
     Dates: start: 20180512, end: 20180912
  8. VENTOLIN [Concomitant]
     Active Substance: ALBUTEROL SULFATE
     Route: 065

REACTIONS (6)
  - Arteriospasm coronary [Recovered/Resolved]
  - Asthenia [Recovered/Resolved]
  - Chest pain [Recovered/Resolved]
  - Hyperhidrosis [Recovered/Resolved]
  - Dizziness [Recovered/Resolved]
  - Nausea [Recovered/Resolved]

NARRATIVE: CASE EVENT DATE: 20180912
